FAERS Safety Report 8921421 (Version 2)
Quarter: 2013Q1

REPORT INFORMATION
  Report Type: Spontaneous
  Country: US (occurrence: US)
  Receive Date: 20121121
  Receipt Date: 20130122
  Transmission Date: 20140127
  Serious: No
  Sender: FDA-Public Use
  Company Number: US-ASTRAZENECA-2012SE85315

PATIENT
  Age: 54 Year
  Sex: Female
  Weight: 56.7 kg

DRUGS (4)
  1. SYMBICORT [Suspect]
     Indication: CHRONIC OBSTRUCTIVE PULMONARY DISEASE
     Dosage: 160/4.5UG TWO PUFFS TWO TIMES DAILY
     Route: 055
     Dates: start: 201203
  2. SYMBICORT [Suspect]
     Indication: ASTHMA
     Dosage: 160/4.5UG TWO PUFFS TWO TIMES DAILY
     Route: 055
     Dates: start: 201203
  3. PROAIR [Concomitant]
     Indication: ASTHMA
     Dosage: AS REQUIRED
     Route: 055
  4. PROAIR [Concomitant]
     Indication: CHRONIC OBSTRUCTIVE PULMONARY DISEASE
     Dosage: AS REQUIRED
     Route: 055

REACTIONS (3)
  - Dyspnoea [Unknown]
  - Tongue blistering [Unknown]
  - Dysphonia [Unknown]
